FAERS Safety Report 22590960 (Version 4)
Quarter: 2023Q2

REPORT INFORMATION
  Report Type: Spontaneous
  Country: AU (occurrence: None)
  Receive Date: 20230612
  Receipt Date: 20230630
  Transmission Date: 20230721
  Serious: Yes (Other)
  Sender: FDA-Public Use
  Company Number: AU-ROCHE-3269229

PATIENT
  Sex: Female
  Weight: 48 kg

DRUGS (3)
  1. POLIVY [Suspect]
     Active Substance: POLATUZUMAB VEDOTIN-PIIQ
     Indication: Diffuse large B-cell lymphoma
     Dosage: ON, 01/FEB/2023, PATIENT RECEIVED MOST RECENT DOSE PRIOR TO AE.?1.8 MG/KG/IV Q21
     Route: 042
     Dates: start: 20221130
  2. RITUXIMAB [Suspect]
     Active Substance: RITUXIMAB
     Indication: Product used for unknown indication
     Dosage: ON 24/MAY/2022, THE PATIENT WAS RECEIVED MOST RECENT DOSE PRIOR TO AE.
     Route: 065
     Dates: start: 20220329
  3. BENDAMUSTINE [Suspect]
     Active Substance: BENDAMUSTINE
     Indication: Product used for unknown indication
     Dosage: ON 21/APR/2021, PATIENT RECEIVED MOST RECENT DOSE PRIOR TO AE.
     Route: 065
     Dates: start: 20201013

REACTIONS (3)
  - Off label use [Unknown]
  - Diffuse large B-cell lymphoma recurrent [Unknown]
  - Disease progression [Unknown]
